FAERS Safety Report 5600271-X (Version None)
Quarter: 2007Q4

REPORT INFORMATION
  Report Type: 
  Country: None (occurrence: None)
  Receive Date: 20071227
  Receipt Date: 20071012
  Transmission Date: 20080405
  Serious: Yes (Other)
  Sender: FDA-Public Use
  Company Number: 2007S1000259

PATIENT
  Age: 33 Year
  Sex: Male

DRUGS (2)
  1. SORIATANE [Suspect]
     Indication: CUTANEOUS LUPUS ERYTHEMATOSUS
     Dosage: 25 MG;QD;PO : ;QD;PO
     Route: 048
     Dates: start: 20061001, end: 20070101
  2. SORIATANE [Suspect]
     Indication: CUTANEOUS LUPUS ERYTHEMATOSUS
     Dosage: 25 MG;QD;PO : ;QD;PO
     Route: 048
     Dates: start: 20070101

REACTIONS (1)
  - SINUSITIS BACTERIAL [None]
